FAERS Safety Report 5723538-3 (Version None)
Quarter: 2008Q2

REPORT INFORMATION
  Report Type: 
  Country: None (occurrence: None)
  Receive Date: 20080430
  Receipt Date: 20080424
  Transmission Date: 20081010
  Serious: Yes (Hospitalization, Disabling)
  Sender: FDA-Public Use
  Company Number: A0724565A

PATIENT
  Age: 67 Year
  Sex: Male

DRUGS (6)
  1. AVANDIA [Suspect]
     Dosage: 4MG TWICE PER DAY
     Route: 048
     Dates: start: 20010101
  2. CARVEDILOL [Suspect]
     Indication: ATRIOVENTRICULAR BLOCK COMPLETE
     Dosage: 12.5MG TWICE PER DAY
     Route: 048
     Dates: start: 20080409
  3. GLUCOVANCE [Concomitant]
  4. AVANDIA [Concomitant]
  5. LISINOPRIL [Concomitant]
  6. METFORMIN HCL [Concomitant]

REACTIONS (3)
  - ATRIOVENTRICULAR BLOCK [None]
  - CATARACT [None]
  - VISION BLURRED [None]
